FAERS Safety Report 20936580 (Version 1)
Quarter: 2022Q2

REPORT INFORMATION
  Report Type: Spontaneous
  Country: ES (occurrence: ES)
  Receive Date: 20220609
  Receipt Date: 20220609
  Transmission Date: 20220721
  Serious: Yes (Hospitalization)
  Sender: FDA-Public Use
  Company Number: None

PATIENT
  Age: 58 Year
  Sex: Male

DRUGS (3)
  1. IBUPROFEN [Suspect]
     Active Substance: IBUPROFEN
     Dosage: 600MG 1-1-1, UNIT DOSE: 600 MG, FREQUENCY TIME : 8 HOURS, THERAPY DURATION : 6  DAYS
     Route: 048
     Dates: start: 20220204, end: 20220209
  2. METAMIZOLE [Suspect]
     Active Substance: METAMIZOLE
     Dosage: 575 MILLIGRAM DAILY; 575MG 1-0-0, UNIT DOSE: 575 MG, FREQUENCY : 1, FREQUENCY TIME : 1 TOTAL, EVERY
     Route: 048
     Dates: start: 20220209, end: 20220209
  3. ACETAMINOPHEN [Suspect]
     Active Substance: ACETAMINOPHEN
     Dosage: UNIT DOSE : 3 GRAM, FREQUENCY TIME : 1 DAYS, THERAPY DURATION : 8 DAYS
     Route: 048
     Dates: start: 20220107, end: 20220114

REACTIONS (2)
  - Hyperbilirubinaemia [Recovering/Resolving]
  - Mixed liver injury [Recovered/Resolved]

NARRATIVE: CASE EVENT DATE: 20220212
